FAERS Safety Report 5951094-3 (Version None)
Quarter: 2008Q4

REPORT INFORMATION
  Report Type: 
  Country: None (occurrence: None)
  Receive Date: 20081112
  Receipt Date: 20081112
  Transmission Date: 20090506
  Serious: Yes (Other)
  Sender: FDA-Public Use
  Company Number: None

PATIENT
  Age: 34 Year
  Sex: Female
  Weight: 61.6892 kg

DRUGS (7)
  1. ORTHO EVRA [Suspect]
     Indication: CONTRACEPTION
     Dosage: WEEKLY TRANSDERMAL
     Route: 062
     Dates: start: 20081006, end: 20081014
  2. MISOPROSTOL [Concomitant]
  3. MIFEPRISTONE [Concomitant]
  4. AZITHROMYCIN [Concomitant]
  5. IBUPROFEN TABLETS [Concomitant]
  6. ACETAMINOPHEN [Concomitant]
  7. CODEINE SUL TAB [Concomitant]

REACTIONS (4)
  - BLINDNESS UNILATERAL [None]
  - EYE DISORDER [None]
  - THROMBOSIS [None]
  - VISION BLURRED [None]
